FAERS Safety Report 15210780 (Version 1)
Quarter: 2018Q3

REPORT INFORMATION
  Report Type: Spontaneous
  Country: GB (occurrence: GB)
  Receive Date: 20180728
  Receipt Date: 20180728
  Transmission Date: 20181010
  Serious: Yes (Other)
  Sender: FDA-Public Use
  Company Number: GB-TEVA-2018-GB-930073

PATIENT
  Age: 83 Year
  Sex: Female
  Weight: 67 kg

DRUGS (8)
  1. NITROFURANTOIN. [Concomitant]
     Active Substance: NITROFURANTOIN
     Dosage: 2 DOSAGE FORMS DAILY;
     Route: 065
     Dates: start: 20180621
  2. OMEPRAZOLE. [Concomitant]
     Active Substance: OMEPRAZOLE
     Dosage: 1 DOSAGE FORMS DAILY;
     Route: 065
     Dates: start: 20021211
  3. BUTEC [Concomitant]
     Active Substance: BUPRENORPHINE
     Dosage: APPLY AS DIRECTED
     Dates: start: 20180410
  4. PARACETAMOL [Concomitant]
     Active Substance: ACETAMINOPHEN
     Dosage: 8 DOSAGE FORMS DAILY;
     Dates: start: 20080915
  5. TRIMETHOPRIM. [Suspect]
     Active Substance: TRIMETHOPRIM
     Dosage: 400 MILLIGRAM DAILY;
     Route: 065
     Dates: start: 20180619, end: 20180620
  6. LOPERAMIDE [Concomitant]
     Active Substance: LOPERAMIDE
     Indication: DIARRHOEA
     Route: 065
     Dates: start: 20170927
  7. TRAMADOL. [Concomitant]
     Active Substance: TRAMADOL
     Dosage: 1?2 FOUR TIMES A DAY
     Dates: start: 20170302
  8. DOMPERIDONE [Concomitant]
     Active Substance: DOMPERIDONE
     Dosage: 1 DOSAGE FORMS DAILY; EACH MORNING
     Dates: start: 20130617

REACTIONS (1)
  - Lip swelling [Recovering/Resolving]

NARRATIVE: CASE EVENT DATE: 20180621
